FAERS Safety Report 18223309 (Version 36)
Quarter: 2025Q2

REPORT INFORMATION
  Report Type: Spontaneous
  Country: IN (occurrence: IN)
  Receive Date: 20200902
  Receipt Date: 20250502
  Transmission Date: 20250716
  Serious: Yes (Hospitalization, Other)
  Sender: PFIZER
  Company Number: IN-PFIZER INC-2019119041

PATIENT
  Age: 79 Year
  Sex: Female

DRUGS (35)
  1. PALBOCICLIB [Suspect]
     Active Substance: PALBOCICLIB
     Indication: Breast cancer metastatic
     Dosage: 125 MG, 1X/DAY
     Route: 048
     Dates: start: 20190121
  2. PALBOCICLIB [Suspect]
     Active Substance: PALBOCICLIB
     Route: 048
     Dates: end: 202210
  3. PALBOCICLIB [Suspect]
     Active Substance: PALBOCICLIB
     Route: 048
     Dates: end: 20230315
  4. PALBOCICLIB [Suspect]
     Active Substance: PALBOCICLIB
     Route: 048
     Dates: start: 20230407
  5. PALBOCICLIB [Suspect]
     Active Substance: PALBOCICLIB
     Dosage: 75 MG, 1X/DAY
     Route: 048
  6. PALBOCICLIB [Suspect]
     Active Substance: PALBOCICLIB
     Route: 048
     Dates: end: 20240401
  7. PALBOCICLIB [Suspect]
     Active Substance: PALBOCICLIB
     Route: 048
     Dates: start: 20240430
  8. PALBOCICLIB [Suspect]
     Active Substance: PALBOCICLIB
     Dosage: 75 MG, 1X/DAY
     Route: 048
     Dates: end: 202503
  9. FEMARA [Suspect]
     Active Substance: LETROZOLE
     Indication: Breast cancer metastatic
     Dosage: 2.5 MG, 1X/DAY
     Dates: start: 201901
  10. DIGOXIN [Concomitant]
     Active Substance: DIGOXIN
     Indication: Cardiac disorder
     Dosage: 0.25 HALF TAB, ALTERNATE DAY
  11. THYROXINE [Concomitant]
     Active Substance: LEVOTHYROXINE
  12. LINAGLIPTIN [Concomitant]
     Active Substance: LINAGLIPTIN
     Indication: Diabetes mellitus
     Dosage: 5 MG, 1X/DAY(OD)
  13. NEBIVOLOL HYDROCHLORIDE [Concomitant]
     Active Substance: NEBIVOLOL HYDROCHLORIDE
  14. ETOFYLLINE\THEOPHYLLINE [Concomitant]
     Active Substance: ETOFYLLINE\THEOPHYLLINE
  15. CLOPIDOGREL BISULFATE [Concomitant]
     Active Substance: CLOPIDOGREL BISULFATE
  16. GABANEURON NT [Concomitant]
  17. ATORVASTATIN [Concomitant]
     Active Substance: ATORVASTATIN
  18. LIPAGLYN [Concomitant]
  19. XGEVA [Concomitant]
     Active Substance: DENOSUMAB
     Route: 058
  20. PANTOCID-D [Concomitant]
  21. EPLERENONE [Concomitant]
     Active Substance: EPLERENONE
  22. ASPIRIN\CLOPIDOGREL BISULFATE [Concomitant]
     Active Substance: ASPIRIN\CLOPIDOGREL BISULFATE
  23. AZTOR [ATORVASTATIN CALCIUM] [Concomitant]
  24. BISOPROLOL FUMARATE [Concomitant]
     Active Substance: BISOPROLOL FUMARATE
     Indication: Cardiac disorder
     Dosage: 2.5 MG, 1X/DAY(OD)
  25. ISMO [Concomitant]
     Active Substance: ISOSORBIDE MONONITRATE
  26. NIKORAN [Concomitant]
  27. TORSEMIDE [Concomitant]
     Active Substance: TORSEMIDE
     Indication: Cardiac disorder
     Dosage: 10 MG HALF TAB, ALTERNATE DAY
  28. IVABRADINE HYDROCHLORIDE [Concomitant]
     Active Substance: IVABRADINE HYDROCHLORIDE
  29. PREGABALIN [Concomitant]
     Active Substance: PREGABALIN
     Indication: Neuropathy peripheral
     Dosage: 50 MG, 1X/DAY(OD)
  30. FELICITA OD [Concomitant]
  31. MEGASTY [Concomitant]
     Dosage: 160 MG, DAILY
  32. LEVOTHYROXINE [Concomitant]
     Active Substance: LEVOTHYROXINE
     Indication: Thyroid disorder
     Dosage: 50 MG, 1X/DAY(OD)
  33. PANTACID [PANTOPRAZOLE SODIUM SESQUIHYDRATE] [Concomitant]
     Indication: Antacid therapy
     Dosage: UNK, 1X/DAY
  34. SACUBITRIL\VALSARTAN [Concomitant]
     Active Substance: SACUBITRIL\VALSARTAN
     Indication: Cardiac disorder
     Dosage: 50 MG, 3X/DAY(TD)
  35. ECOSPRIN GOLD [Concomitant]
     Indication: Cardiac disorder
     Dosage: 75 MG, 1X/DAY(OD)

REACTIONS (38)
  - Left ventricular failure [Unknown]
  - Myocardial ischaemia [Unknown]
  - Cardiac disorder [Unknown]
  - Food poisoning [Unknown]
  - H1N1 influenza [Unknown]
  - H3N2 influenza [Recovered/Resolved]
  - Acute respiratory distress syndrome [Unknown]
  - Dyspnoea [Recovered/Resolved]
  - Pyrexia [Recovered/Resolved]
  - Decubitus ulcer [Unknown]
  - Infection [Unknown]
  - Hyperhidrosis [Unknown]
  - Narcolepsy [Unknown]
  - Chronic obstructive pulmonary disease [Unknown]
  - Heart rate increased [Unknown]
  - Blood pressure increased [Unknown]
  - Diarrhoea [Unknown]
  - Ventricular hypokinesia [Unknown]
  - Tachypnoea [Unknown]
  - Ejection fraction decreased [Unknown]
  - Urosepsis [Recovered/Resolved]
  - Metastases to lymph nodes [Unknown]
  - Metastases to neck [Unknown]
  - Recurrent cancer [Unknown]
  - Arthralgia [Unknown]
  - Full blood count decreased [Unknown]
  - White blood cell count decreased [Unknown]
  - Blood thyroid stimulating hormone decreased [Unknown]
  - Urinary tract infection [Unknown]
  - Drug level increased [Unknown]
  - COVID-19 [Unknown]
  - Spondylitis [Unknown]
  - Viral infection [Unknown]
  - Post procedural haematoma [Unknown]
  - Immune system disorder [Unknown]
  - Pain [Unknown]
  - Off label use [Unknown]
  - Product use issue [Unknown]

NARRATIVE: CASE EVENT DATE: 20190101
